FAERS Safety Report 16345045 (Version 1)
Quarter: 2019Q2

REPORT INFORMATION
  Report Type: Report from Study
  Country: IL (occurrence: IL)
  Receive Date: 20190523
  Receipt Date: 20190523
  Transmission Date: 20190711
  Serious: Yes (Other)
  Sender: FDA-Public Use
  Company Number: IL-SA-2019SA131052

PATIENT
  Sex: Female

DRUGS (8)
  1. INSULIN GLARGINE [Suspect]
     Active Substance: INSULIN GLARGINE
     Dosage: 12 IU
     Route: 058
  2. INSULIN GLARGINE [Suspect]
     Active Substance: INSULIN GLARGINE
     Dosage: 20 IU, QD
     Route: 058
  3. INSULIN GLULISINE [Suspect]
     Active Substance: INSULIN GLULISINE
     Dosage: 8- 10 U
     Route: 058
  4. TRITACE [Concomitant]
     Active Substance: RAMIPRIL
     Dosage: 5 UNK
  5. INSULIN GLULISINE [Suspect]
     Active Substance: INSULIN GLULISINE
     Dosage: 10 IU, TID
     Route: 058
  6. DIOVAN [Concomitant]
     Active Substance: VALSARTAN
     Dosage: 160 MG
  7. GLUCOPHAGE [Concomitant]
     Active Substance: METFORMIN HYDROCHLORIDE
     Dosage: 850 MG, BID
  8. AMARYL [Concomitant]
     Active Substance: GLIMEPIRIDE
     Dosage: 4 MG

REACTIONS (5)
  - Blood glucose abnormal [Not Recovered/Not Resolved]
  - Dialysis [Unknown]
  - Product dose omission [Unknown]
  - Blood glucose increased [Unknown]
  - Visual impairment [Unknown]
